FAERS Safety Report 15492805 (Version 2)
Quarter: 2018Q4

REPORT INFORMATION
  Report Type: Spontaneous
  Country: JP (occurrence: JP)
  Receive Date: 20181012
  Receipt Date: 20181012
  Transmission Date: 20190205
  Serious: Yes (Other)
  Sender: FDA-Public Use
  Company Number: JP-TEVA-2018-JP-000446J

PATIENT
  Sex: Female
  Weight: 44 kg

DRUGS (11)
  1. CALCITRIOL CAPSULE 0.25MICROG TEVA [Suspect]
     Active Substance: CALCITRIOL
     Dosage: .25 MICROGRAM DAILY;
     Route: 048
     Dates: start: 20171215
  2. ALENDRONATE [Concomitant]
     Active Substance: ALENDRONATE SODIUM
     Route: 065
     Dates: end: 20171206
  3. MENESIT [Concomitant]
     Active Substance: CARBIDOPA\LEVODOPA
     Route: 065
  4. AMLODIPINE [Concomitant]
     Active Substance: AMLODIPINE BESYLATE
     Route: 065
  5. VALSARTAN. [Concomitant]
     Active Substance: VALSARTAN
     Route: 065
  6. MIRAPEX-LA [Concomitant]
     Route: 065
  7. GOODMIN [Concomitant]
     Active Substance: BROTIZOLAM
     Route: 065
  8. REBAMIPIDE [Concomitant]
     Active Substance: REBAMIPIDE
     Route: 065
  9. CALCITRIOL CAPSULE 0.25MICROG TEVA [Suspect]
     Active Substance: CALCITRIOL
     Indication: OSTEOPOROSIS
     Dosage: .5 MICROGRAM DAILY;
     Route: 048
     Dates: end: 20171206
  10. MAGNESIUM OXIDE. [Concomitant]
     Active Substance: MAGNESIUM OXIDE
     Route: 065
     Dates: end: 20171206
  11. LANSOPRAZOLE OD [Concomitant]
     Active Substance: LANSOPRAZOLE
     Route: 065

REACTIONS (2)
  - Renal impairment [Recovering/Resolving]
  - Hypercalcaemia [Recovered/Resolved]

NARRATIVE: CASE EVENT DATE: 20171204
